FAERS Safety Report 25856079 (Version 2)
Quarter: 2025Q4

REPORT INFORMATION
  Report Type: Report from Study
  Country: US (occurrence: US)
  Receive Date: 20250928
  Receipt Date: 20251030
  Transmission Date: 20260117
  Serious: Yes (Other)
  Sender: ALEXION PHARMACEUTICALS
  Company Number: US-AstraZeneca-CH-00958563A

PATIENT
  Sex: Male
  Weight: 70.8 kg

DRUGS (2)
  1. DURVALUMAB [4]
     Active Substance: DURVALUMAB
     Dosage: 1500 MG INTRAVENOUS INFUSION, EVERY 28 DAYS
  2. UNSPECIFIED INGREDIENT [Suspect]
     Active Substance: UNSPECIFIED INGREDIENT
     Dosage: UNK
     Route: 065

REACTIONS (1)
  - Oesophageal carcinoma [Unknown]
